FAERS Safety Report 20511656 (Version 1)
Quarter: 2022Q1

REPORT INFORMATION
  Report Type: Spontaneous
  Country: CN (occurrence: CN)
  Receive Date: 20220224
  Receipt Date: 20220224
  Transmission Date: 20220423
  Serious: Yes (Hospitalization, Other)
  Sender: FDA-Public Use
  Company Number: CN-MACLEODS PHARMACEUTICALS US LTD-MAC2022034488

PATIENT

DRUGS (9)
  1. VENLAFAXINE [Suspect]
     Active Substance: VENLAFAXINE HYDROCHLORIDE
     Indication: Parkinson^s disease
     Dosage: 150 MILLIGRAM, QD, PROLONGED RELEASE CAPSULES
     Route: 048
  2. ALPRAZOLAM [Suspect]
     Active Substance: ALPRAZOLAM
     Indication: Parkinson^s disease
     Dosage: 0.8 MILLIGRAM, QD
     Route: 065
  3. LORAZEPAM [Suspect]
     Active Substance: LORAZEPAM
     Indication: Parkinson^s disease
     Dosage: 1.5 MILLIGRAM
     Route: 065
  4. TRIHEXYPHENIDYL [Suspect]
     Active Substance: TRIHEXYPHENIDYL
     Indication: Parkinson^s disease
     Dosage: 2 MILLIGRAM, BID, 12 HOUR
     Route: 065
  5. TRIHEXYPHENIDYL [Suspect]
     Active Substance: TRIHEXYPHENIDYL
     Indication: Muscle tone disorder
  6. PAROXETINE [Suspect]
     Active Substance: PAROXETINE
     Indication: Parkinson^s disease
     Dosage: 40 MILLIGRAM, QD
     Route: 065
  7. PAROXETINE [Suspect]
     Active Substance: PAROXETINE
     Dosage: 20 MILLIGRAM
     Route: 065
  8. SCOPOLAMINE [Suspect]
     Active Substance: SCOPOLAMINE
     Indication: Parkinson^s disease
     Dosage: 0.3 MILLIGRAM
     Route: 065
  9. SCOPOLAMINE [Suspect]
     Active Substance: SCOPOLAMINE
     Indication: Muscle tone disorder

REACTIONS (3)
  - Parkinsonism [Unknown]
  - Parkinsonism [Unknown]
  - Delirium [Recovered/Resolved]
